FAERS Safety Report 4319247-8 (Version None)
Quarter: 2004Q1

REPORT INFORMATION
  Report Type: 
  Country: None (occurrence: None)
  Receive Date: 20040316
  Receipt Date: 20040305
  Transmission Date: 20041129
  Serious: Yes (Death)
  Sender: FDA-Public Use
  Company Number: UK047232

PATIENT
  Age: 53 Year
  Sex: Female
  Weight: 74.5 kg

DRUGS (10)
  1. ARANESP [Suspect]
     Indication: RENAL FAILURE CHRONIC
     Dosage: 80 MCG, WEEKLY, IV
     Route: 042
     Dates: start: 20030821, end: 20030902
  2. METOPROLOL SUCCINATE [Concomitant]
  3. VECURONIUM BROMIDE [Concomitant]
  4. CANDESARTAN [Concomitant]
  5. TORSEMIDE [Concomitant]
  6. PRAZOSIN HYDROCHLORIDE [Concomitant]
  7. ASPIRIN [Concomitant]
  8. SODIUM POLYSTYRENE SULFONATE [Concomitant]
  9. INSULIN ASPART [Concomitant]
  10. INSULIN INJECTION, ISOPHANE [Concomitant]

REACTIONS (5)
  - CARDIAC ARREST [None]
  - DYSPNOEA [None]
  - HYPERKALAEMIA [None]
  - PUPIL FIXED [None]
  - SHOCK [None]
